FAERS Safety Report 20796488 (Version 2)
Quarter: 2022Q3

REPORT INFORMATION
  Report Type: Report from Study
  Country: US (occurrence: US)
  Receive Date: 20220506
  Receipt Date: 20220807
  Transmission Date: 20221027
  Serious: Yes (Other)
  Sender: FDA-Public Use
  Company Number: US-ABBVIE-22K-163-4382165-00

PATIENT
  Sex: Female
  Weight: 62.652 kg

DRUGS (1)
  1. RINVOQ [Suspect]
     Active Substance: UPADACITINIB
     Indication: Rheumatoid arthritis
     Route: 048
     Dates: start: 2020

REACTIONS (8)
  - Nerve compression [Recovering/Resolving]
  - Tendonitis [Recovering/Resolving]
  - Carpal tunnel syndrome [Recovering/Resolving]
  - Hypoaesthesia [Recovering/Resolving]
  - Increased tendency to bruise [Not Recovered/Not Resolved]
  - COVID-19 [Recovering/Resolving]
  - Aphonia [Recovering/Resolving]
  - Immunodeficiency [Unknown]

NARRATIVE: CASE EVENT DATE: 20220101
